FAERS Safety Report 6599879-7 (Version None)
Quarter: 2010Q1

REPORT INFORMATION
  Report Type: 
  Country: None (occurrence: None)
  Receive Date: 20100217
  Receipt Date: 20100208
  Transmission Date: 20100710
  Serious: Yes (Hospitalization)
  Sender: FDA-Public Use
  Company Number: 2010000777

PATIENT
  Age: 27 Year
  Sex: Female
  Weight: 65.7716 kg

DRUGS (4)
  1. GABITRIL [Suspect]
     Indication: GRAND MAL CONVULSION
     Dosage: 24 MG (12 MG, 2 IN 1 D), ORAL
     Route: 048
     Dates: start: 19981001
  2. GABITRIL [Suspect]
     Indication: PETIT MAL EPILEPSY
     Dosage: 24 MG (12 MG, 2 IN 1 D), ORAL
     Route: 048
     Dates: start: 19981001
  3. LEVOTHYROXINE SODIUM [Concomitant]
  4. ORTHO-NOVUM [Concomitant]

REACTIONS (3)
  - CONVULSION [None]
  - PANIC ATTACK [None]
  - UTERINE NEOPLASM [None]
